FAERS Safety Report 5691560-1 (Version None)
Quarter: 2008Q2

REPORT INFORMATION
  Report Type: 
  Country: None (occurrence: None)
  Receive Date: 20080402
  Receipt Date: 20041102
  Transmission Date: 20081010
  Serious: Yes (Death)
  Sender: FDA-Public Use
  Company Number: US-ROCHE-385386

PATIENT

DRUGS (2)
  1. XELODA [Suspect]
     Route: 048
     Dates: start: 20010101
  2. FUDR [Suspect]
     Route: 013
     Dates: start: 20010101

REACTIONS (1)
  - DEATH [None]
